FAERS Safety Report 18783358 (Version 2)
Quarter: 2021Q1

REPORT INFORMATION
  Report Type: Spontaneous
  Country: US (occurrence: US)
  Receive Date: 20210125
  Receipt Date: 20210203
  Transmission Date: 20210419
  Serious: Yes (Other)
  Sender: FDA-Public Use
  Company Number: US-AMNEAL PHARMACEUTICALS-2021-AMRX-00117

PATIENT
  Age: 10 Year
  Sex: Male
  Weight: 27.6 kg

DRUGS (5)
  1. LEVOTHYROXINE SODIUM. [Suspect]
     Active Substance: LEVOTHYROXINE SODIUM
     Indication: METASTASES TO THYROID
     Dosage: 100MCG
     Route: 048
     Dates: start: 202007
  2. GENOTROPIN [Suspect]
     Active Substance: SOMATROPIN
     Indication: ONCOLOGIC COMPLICATION
     Dosage: UNK
     Route: 065
     Dates: end: 202008
  3. LEVOTHYROXINE SODIUM. [Suspect]
     Active Substance: LEVOTHYROXINE SODIUM
     Dosage: 75 MICROGRAM, DAILY
     Route: 065
  4. LEVOTHYROXINE SODIUM. [Suspect]
     Active Substance: LEVOTHYROXINE SODIUM
     Indication: THYROIDECTOMY
     Dosage: 88MCG, 1 TABLETS, 1X/DAY
     Route: 048
     Dates: start: 202011
  5. NORDITROPIN [Suspect]
     Active Substance: SOMATROPIN
     Indication: ONCOLOGIC COMPLICATION
     Dosage: UNK
     Route: 065
     Dates: start: 202008

REACTIONS (5)
  - Failure to thrive [Recovering/Resolving]
  - Contusion [Recovering/Resolving]
  - Decreased appetite [Recovering/Resolving]
  - Hyperthyroidism [Recovering/Resolving]
  - Weight decreased [Recovering/Resolving]

NARRATIVE: CASE EVENT DATE: 202007
